FAERS Safety Report 9344218 (Version 1)
Quarter: 2013Q2

REPORT INFORMATION
  Report Type: Spontaneous
  Country: US (occurrence: None)
  Receive Date: 20130610
  Receipt Date: 20130610
  Transmission Date: 20140414
  Serious: Yes (Hospitalization)
  Sender: FDA-Public Use
  Company Number: ACO_35884_2013

PATIENT
  Age: 56 Year
  Sex: Female
  Weight: 66.2 kg

DRUGS (4)
  1. AMPYRA (DALFAMPRIDINE) TABLET, 10MG [Suspect]
     Indication: GAIT DISTURBANCE
     Route: 048
     Dates: start: 2012, end: 20130324
  2. NEURONTIN (GABAPENTIN) [Concomitant]
  3. COPAXONE (GLATIRAMER ACETATE) [Concomitant]
  4. ZANAFLEX (TIZANIDINE HYDROCHLORIDE) [Concomitant]

REACTIONS (2)
  - Encephalopathy [None]
  - Urinary tract infection [None]
